FAERS Safety Report 8566487 (Version 3)
Quarter: 2014Q1

REPORT INFORMATION
  Report Type: Spontaneous
  Country: US (occurrence: US)
  Receive Date: 20120517
  Receipt Date: 20140102
  Transmission Date: 20141002
  Serious: Yes (Hospitalization, Other)
  Sender: FDA-Public Use
  Company Number: US-BAYER-2012-047918

PATIENT
  Age: 22 Year
  Sex: Female
  Weight: 86.17 kg

DRUGS (2)
  1. OCELLA [Suspect]
     Indication: MENSTRUATION IRREGULAR
     Dosage: UNK
     Dates: start: 20081010, end: 20090529
  2. YAZ [Suspect]
     Indication: MENSTRUATION IRREGULAR
     Dosage: UNK
     Dates: start: 20090622, end: 20090704

REACTIONS (10)
  - Gallbladder disorder [None]
  - Cholecystitis chronic [Recovering/Resolving]
  - Pancreatitis [None]
  - Abdominal pain [None]
  - Injury [None]
  - Pain [None]
  - General physical health deterioration [None]
  - Anxiety [None]
  - Emotional distress [None]
  - Off label use [None]
